FAERS Safety Report 12200264 (Version 1)
Quarter: 2016Q1

REPORT INFORMATION
  Report Type: Spontaneous
  Country: US (occurrence: US)
  Receive Date: 20160322
  Receipt Date: 20160322
  Transmission Date: 20160526
  Serious: Yes (Hospitalization, Other)
  Sender: FDA-Public Use
  Company Number: US-MYLANLABS-2016M1012195

PATIENT

DRUGS (3)
  1. AMPICILLIN [Suspect]
     Active Substance: AMPICILLIN
     Indication: ENCEPHALITIS
     Dosage: UNK
     Route: 065
  2. VANCOMYCIN [Suspect]
     Active Substance: VANCOMYCIN
     Indication: MENINGOENCEPHALITIS BACTERIAL
     Dosage: UNK
     Route: 065
  3. CEFOTAXIME [Suspect]
     Active Substance: CEFOTAXIME SODIUM
     Indication: MENINGOENCEPHALITIS BACTERIAL
     Dosage: UNK
     Route: 065

REACTIONS (5)
  - Drug ineffective [Not Recovered/Not Resolved]
  - Encephalitis [Not Recovered/Not Resolved]
  - Apnoea [Unknown]
  - Seizure [Not Recovered/Not Resolved]
  - Developmental delay [Not Recovered/Not Resolved]
